FAERS Safety Report 8353926-0 (Version None)
Quarter: 2012Q2

REPORT INFORMATION
  Report Type: 
  Country: None (occurrence: None)
  Receive Date: 20120511
  Receipt Date: 20120504
  Transmission Date: 20120825
  Serious: Yes (Congenital Anomaly, Other)
  Sender: FDA-Public Use
  Company Number: BE-ABBOTT-12P-013-0919169-00

PATIENT
  Sex: Female

DRUGS (1)
  1. DEPAKENE [Suspect]
     Indication: MATERNAL EXPOSURE TIMING UNSPECIFIED
     Route: 064

REACTIONS (7)
  - GASTROSTOMY [None]
  - CONGENITAL HAND MALFORMATION [None]
  - CONGENITAL HEARING DISORDER [None]
  - CONGENITAL ANOMALY [None]
  - FOETAL EXPOSURE DURING PREGNANCY [None]
  - BLINDNESS CONGENITAL [None]
  - HEART DISEASE CONGENITAL [None]
